FAERS Safety Report 9436576 (Version 1)
Quarter: 2013Q3

REPORT INFORMATION
  Report Type: Spontaneous
  Country: US (occurrence: US)
  Receive Date: 20130802
  Receipt Date: 20130802
  Transmission Date: 20140515
  Serious: No
  Sender: FDA-Public Use
  Company Number: US-OPTIMER-20130195

PATIENT
  Age: 64 Year
  Sex: Male

DRUGS (3)
  1. FIDAXOMICIN [Suspect]
     Indication: CLOSTRIDIUM DIFFICILE COLITIS
     Dosage: UNK
     Dates: start: 20121114, end: 20121123
  2. METRONIDAZOLE [Concomitant]
     Dosage: UNK
     Dates: start: 20121112, end: 20121114
  3. VANCOMYCIN [Concomitant]
     Dosage: UNK
     Route: 048
     Dates: start: 20121112, end: 20121114

REACTIONS (3)
  - White blood cell count increased [Unknown]
  - Clostridium difficile colitis [Unknown]
  - Disease recurrence [Unknown]
